FAERS Safety Report 5380173-7 (Version None)
Quarter: 2007Q3

REPORT INFORMATION
  Report Type: 
  Country: None (occurrence: None)
  Receive Date: 20070706
  Receipt Date: 20070508
  Transmission Date: 20080115
  Serious: No
  Sender: FDA-Public Use
  Company Number: A0650455A

PATIENT
  Age: 59 Year
  Sex: Female

DRUGS (19)
  1. TYKERB [Suspect]
     Indication: BREAST CANCER
     Dosage: 1250MG PER DAY
     Route: 048
     Dates: start: 20070411
  2. XELODA [Concomitant]
  3. OXYCODONE HCL [Concomitant]
  4. HYDROMORPHONE HCL [Concomitant]
  5. COUMADIN [Concomitant]
  6. ATENOLOL [Concomitant]
  7. CELEXA [Concomitant]
  8. SYNTHROID [Concomitant]
  9. DIAZEPAM [Concomitant]
  10. TRAZODONE HCL [Concomitant]
  11. PREDNISONE TAB [Concomitant]
  12. PRILOSEC [Concomitant]
  13. CARAFATE [Concomitant]
  14. METOCLOPRAMIDE [Concomitant]
  15. FIORINAL W/CODEINE [Concomitant]
  16. MULTIVITAMIN [Concomitant]
  17. EXCEDRIN (MIGRAINE) [Concomitant]
  18. STOOL SOFTENER [Concomitant]
  19. GLUCOSAMINE CHONDROITIN [Concomitant]

REACTIONS (4)
  - DIARRHOEA [None]
  - HEADACHE [None]
  - HYPOAESTHESIA [None]
  - PARAESTHESIA [None]
